FAERS Safety Report 10853477 (Version 1)
Quarter: 2015Q1

REPORT INFORMATION
  Report Type: Spontaneous
  Country: None (occurrence: None)
  Receive Date: 20150218
  Receipt Date: 20150218
  Transmission Date: 20150721
  Serious: Yes (Death, Hospitalization)
  Sender: FDA-Public Use
  Company Number: None

PATIENT
  Age: 57 Year
  Sex: Female
  Weight: 47 kg

DRUGS (1)
  1. ERBITUX [Suspect]
     Active Substance: CETUXIMAB
     Dates: end: 20140610

REACTIONS (5)
  - Hypoxia [None]
  - Confusional state [None]
  - Respiratory distress [None]
  - Fall [None]
  - Cachexia [None]

NARRATIVE: CASE EVENT DATE: 20140613
